FAERS Safety Report 16980226 (Version 1)
Quarter: 2019Q4

REPORT INFORMATION
  Report Type: Spontaneous
  Country: US (occurrence: US)
  Receive Date: 20191031
  Receipt Date: 20191031
  Transmission Date: 20200122
  Serious: No
  Sender: FDA-Public Use
  Company Number: US-PFIZER INC-2019469442

PATIENT
  Age: 9 Year
  Sex: Female

DRUGS (1)
  1. SERTRALINE HCL [Suspect]
     Active Substance: SERTRALINE HYDROCHLORIDE
     Dosage: 0.5 ML, 1X/DAY [0.5 ML OF THE SOLUTION AT NIGHT]
     Route: 048
     Dates: start: 20190823

REACTIONS (1)
  - Diarrhoea [Unknown]
